FAERS Safety Report 16991891 (Version 1)
Quarter: 2019Q4

REPORT INFORMATION
  Report Type: Spontaneous
  Country: US (occurrence: US)
  Receive Date: 20190921
  Receipt Date: 20190921
  Transmission Date: 20200122
  Serious: No
  Sender: FDA-Public Use
  Company Number: None

PATIENT
  Age: 44 Year
  Sex: Female

DRUGS (1)
  1. TALTZ [Suspect]
     Active Substance: IXEKIZUMAB
     Indication: PSORIASIS
     Dosage: ?          OTHER DOSE:TALTZ;?
     Route: 058
     Dates: start: 201902

REACTIONS (3)
  - Sinusitis [None]
  - Psoriasis [None]
  - Disease recurrence [None]

NARRATIVE: CASE EVENT DATE: 20190921
